FAERS Safety Report 7584154-4 (Version None)
Quarter: 2011Q2

REPORT INFORMATION
  Report Type: 
  Country: None (occurrence: None)
  Receive Date: 20110630
  Receipt Date: 20110627
  Transmission Date: 20111010
  Serious: Yes (Other)
  Sender: FDA-Public Use
  Company Number: BR-PFIZER INC-2011142119

PATIENT
  Age: 44 Year
  Sex: Female
  Weight: 85 kg

DRUGS (3)
  1. DEPO-PROVERA [Suspect]
     Indication: ANAEMIA
     Dosage: 150 MG, ONCE A YEAR (APPROXIMATELY)
     Route: 030
  2. LABYRIN [Concomitant]
     Indication: LABYRINTHITIS
     Dosage: UNK, AS NEEDED
     Dates: start: 20010101
  3. DEPO-PROVERA [Suspect]
     Indication: OFF LABEL USE
     Dosage: 150 MG, EVERY 90 DAYS
     Route: 030
     Dates: start: 20010101

REACTIONS (3)
  - AMENORRHOEA [None]
  - CONDITION AGGRAVATED [None]
  - LABYRINTHITIS [None]
